FAERS Safety Report 8443811-8 (Version None)
Quarter: 2012Q2

REPORT INFORMATION
  Report Type: 
  Country: None (occurrence: None)
  Receive Date: 20120618
  Receipt Date: 20120606
  Transmission Date: 20120825
  Serious: Yes (Hospitalization)
  Sender: FDA-Public Use
  Company Number: US-SANOFI-AVENTIS-2012SA040565

PATIENT
  Age: 50 Year
  Sex: Female

DRUGS (3)
  1. LANTUS [Suspect]
     Indication: TYPE 2 DIABETES MELLITUS
     Dosage: 38-42 UNITS NIGHTLY DEPENDING ON WHAT HER SUGARS ARE
     Route: 058
     Dates: start: 20120201
  2. CORTICOSTEROIDS [Suspect]
     Route: 065
  3. SOLOSTAR [Suspect]
     Indication: TYPE 2 DIABETES MELLITUS
     Dates: start: 20120201

REACTIONS (3)
  - BLOOD GLUCOSE INCREASED [None]
  - INJECTION SITE HAEMATOMA [None]
  - ASTHMA [None]
